FAERS Safety Report 8105080-8 (Version None)
Quarter: 2012Q1

REPORT INFORMATION
  Report Type: 
  Country: None (occurrence: None)
  Receive Date: 20120130
  Receipt Date: 20120124
  Transmission Date: 20120608
  Serious: Yes (Hospitalization)
  Sender: FDA-Public Use
  Company Number: DE-ROCHE-1033899

PATIENT
  Sex: Male
  Weight: 78 kg

DRUGS (4)
  1. AVASTIN [Suspect]
     Indication: COLON CANCER METASTATIC
     Route: 042
     Dates: start: 20111130
  2. LEUCOVORIN CALCIUM [Suspect]
     Indication: COLON CANCER METASTATIC
     Route: 042
     Dates: start: 20111130
  3. FLUOROURACIL [Suspect]
     Indication: COLON CANCER METASTATIC
     Route: 042
     Dates: start: 20111130
  4. GRANISETRON HYDROCHLORIDE [Suspect]
     Indication: VOMITING
     Route: 042

REACTIONS (3)
  - GENERAL PHYSICAL HEALTH DETERIORATION [None]
  - DYSPHAGIA [None]
  - DEHYDRATION [None]
